FAERS Safety Report 17253588 (Version 1)
Quarter: 2020Q1

REPORT INFORMATION
  Report Type: Spontaneous
  Country: NL (occurrence: NL)
  Receive Date: 20200109
  Receipt Date: 20200109
  Transmission Date: 20200409
  Serious: Yes (Life-Threatening, Hospitalization)
  Sender: FDA-Public Use
  Company Number: NL-MYLANLABS-2020M1003653

PATIENT
  Age: 88 Year
  Sex: Female
  Weight: 55 kg

DRUGS (6)
  1. CLOPIDOGREL [Suspect]
     Active Substance: CLOPIDOGREL BISULFATE
     Indication: PERIPHERAL VASCULAR DISORDER
     Dosage: 1X PER DAG
     Route: 048
     Dates: start: 20190903, end: 20190909
  2. CLOPIDOGREL [Suspect]
     Active Substance: CLOPIDOGREL BISULFATE
     Indication: ANGIOPLASTY
  3. CALCI CHEW [Concomitant]
     Dosage: UNK
  4. LISINOPRIL. [Suspect]
     Active Substance: LISINOPRIL
     Indication: PRODUCT USED FOR UNKNOWN INDICATION
     Dosage: 1X PER DAG 1 STUK
     Route: 048
     Dates: start: 2014, end: 20190909
  5. THYRAX                             /00068001/ [Concomitant]
     Active Substance: LEVOTHYROXINE
     Dosage: 1DD75MCG
  6. METOPROLOL. [Concomitant]
     Active Substance: METOPROLOL
     Dosage: 1DD100MG

REACTIONS (2)
  - Respiratory distress [Recovered/Resolved]
  - Tongue oedema [Recovered/Resolved]

NARRATIVE: CASE EVENT DATE: 20190908
